FAERS Safety Report 20151375 (Version 10)
Quarter: 2025Q1

REPORT INFORMATION
  Report Type: Spontaneous
  Country: US (occurrence: US)
  Receive Date: 20211206
  Receipt Date: 20250220
  Transmission Date: 20250409
  Serious: Yes (Other)
  Sender: PFIZER
  Company Number: US-PFIZER INC-202101655445

PATIENT
  Age: 65 Year
  Sex: Female
  Weight: 61.995 kg

DRUGS (1)
  1. IBRANCE [Suspect]
     Active Substance: PALBOCICLIB
     Indication: Breast cancer female
     Route: 048
     Dates: start: 20210819

REACTIONS (2)
  - Anaemia [Not Recovered/Not Resolved]
  - Fatigue [Recovering/Resolving]
